FAERS Safety Report 4298833-8 (Version None)
Quarter: 2004Q1

REPORT INFORMATION
  Report Type: 
  Country: None (occurrence: None)
  Receive Date: 20040126
  Receipt Date: 20030912
  Transmission Date: 20041129
  Serious: No
  Sender: FDA-Public Use
  Company Number: USA030947124

PATIENT
  Age: 34 Year
  Sex: Female

DRUGS (5)
  1. STRATTERA [Suspect]
     Indication: ATTENTION DEFICIT/HYPERACTIVITY DISORDER
     Dosage: 40 MG/DAY
     Dates: start: 20030911
  2. WELBUTRIN (BUPROPION HYDROCHLORIDE) [Concomitant]
  3. KLONOPIN [Concomitant]
  4. SYNTHROID [Concomitant]
  5. GLUCOPHAGE [Concomitant]

REACTIONS (4)
  - FATIGUE [None]
  - FEELING OF RELAXATION [None]
  - INSOMNIA [None]
  - YAWNING [None]
